FAERS Safety Report 8152632 (Version 5)
Quarter: 2016Q1

REPORT INFORMATION
  Report Type: Spontaneous
  Country: US (occurrence: US)
  Receive Date: 20110922
  Receipt Date: 20160210
  Transmission Date: 20160526
  Serious: Yes (Hospitalization, Other)
  Sender: FDA-Public Use
  Company Number: US-ASTRAZENECA-2011SE15742

PATIENT
  Age: 897 Month
  Sex: Female
  Weight: 59 kg

DRUGS (26)
  1. EFFEXOR [Concomitant]
     Active Substance: VENLAFAXINE HYDROCHLORIDE
     Indication: PANIC ATTACK
     Route: 048
     Dates: start: 201512
  2. VICKS NYQUIL [Concomitant]
     Active Substance: ACETAMINOPHEN\DEXTROMETHORPHAN HYDROBROMIDE\DOXYLAMINE SUCCINATE
  3. NEURONTIN [Concomitant]
     Active Substance: GABAPENTIN
     Indication: NERVOUSNESS
     Route: 048
  4. BIOTIN [Concomitant]
     Active Substance: BIOTIN
     Indication: VITAMIN D DEFICIENCY
     Route: 048
     Dates: start: 2015
  5. ASPIRIN. [Concomitant]
     Active Substance: ASPIRIN
     Indication: ANTICOAGULANT THERAPY
     Route: 048
  6. EFFEXOR [Concomitant]
     Active Substance: VENLAFAXINE HYDROCHLORIDE
     Indication: NERVOUS SYSTEM DISORDER
     Route: 048
     Dates: start: 201512
  7. OXYGEN. [Concomitant]
     Active Substance: OXYGEN
     Indication: LUNG DISORDER
     Route: 045
  8. SEROQUEL [Suspect]
     Active Substance: QUETIAPINE FUMARATE
     Indication: BIPOLAR DISORDER
     Route: 048
     Dates: start: 2013
  9. EFFEXOR [Concomitant]
     Active Substance: VENLAFAXINE HYDROCHLORIDE
     Indication: NERVOUS SYSTEM DISORDER
     Route: 048
     Dates: start: 2008
  10. AMBIEN [Concomitant]
     Active Substance: ZOLPIDEM TARTRATE
  11. BIOTIN [Concomitant]
     Active Substance: BIOTIN
     Indication: FOLATE DEFICIENCY
     Route: 048
     Dates: start: 2015
  12. NEURONTIN [Concomitant]
     Active Substance: GABAPENTIN
     Indication: PAIN
     Route: 048
  13. VERAPAMIL [Concomitant]
     Active Substance: VERAPAMIL HYDROCHLORIDE
     Indication: CARDIAC DISORDER
     Dates: start: 1993
  14. NEXIUM [Suspect]
     Active Substance: ESOMEPRAZOLE MAGNESIUM
     Indication: GASTROOESOPHAGEAL REFLUX DISEASE
     Route: 048
     Dates: start: 2014
  15. SEROQUEL [Suspect]
     Active Substance: QUETIAPINE FUMARATE
     Indication: BIPOLAR DISORDER
     Route: 048
     Dates: start: 2009
  16. EFFEXOR [Concomitant]
     Active Substance: VENLAFAXINE HYDROCHLORIDE
     Indication: ILL-DEFINED DISORDER
     Route: 048
     Dates: start: 2008
  17. KLONOPIN [Concomitant]
     Active Substance: CLONAZEPAM
     Indication: NERVOUS SYSTEM DISORDER
     Route: 048
     Dates: start: 2008
  18. NEXIUM [Suspect]
     Active Substance: ESOMEPRAZOLE MAGNESIUM
     Indication: GASTROOESOPHAGEAL REFLUX DISEASE
     Route: 048
     Dates: start: 2009
  19. EFFEXOR [Concomitant]
     Active Substance: VENLAFAXINE HYDROCHLORIDE
     Indication: ILL-DEFINED DISORDER
     Route: 048
     Dates: start: 201512
  20. BIOTIN [Concomitant]
     Active Substance: BIOTIN
     Indication: VITAMIN K DEFICIENCY
     Route: 048
     Dates: start: 2015
  21. NASONEX [Concomitant]
     Active Substance: MOMETASONE FUROATE
     Indication: BALANCE DISORDER
     Dosage: TWO TIMES A DAY
     Route: 045
     Dates: start: 201512
  22. PRILOSEC [Suspect]
     Active Substance: OMEPRAZOLE MAGNESIUM
     Indication: GASTROOESOPHAGEAL REFLUX DISEASE
     Route: 048
     Dates: start: 2015
  23. EFFEXOR [Concomitant]
     Active Substance: VENLAFAXINE HYDROCHLORIDE
     Indication: PANIC ATTACK
     Route: 048
     Dates: start: 2008
  24. SYMBICORT [Suspect]
     Active Substance: BUDESONIDE\FORMOTEROL FUMARATE DIHYDRATE
     Route: 055
  25. ZOCOR [Concomitant]
     Active Substance: SIMVASTATIN
     Indication: BLOOD CHOLESTEROL ABNORMAL
     Route: 048
     Dates: start: 2008
  26. ASPIRIN. [Concomitant]
     Active Substance: ASPIRIN
     Indication: CARDIAC DISORDER
     Route: 048

REACTIONS (22)
  - Paralysis [Recovering/Resolving]
  - Bipolar disorder [Unknown]
  - Drug ineffective [Unknown]
  - Cerebral disorder [Recovering/Resolving]
  - Lung disorder [Recovering/Resolving]
  - Balance disorder [Unknown]
  - Therapeutic response unexpected [Unknown]
  - Off label use [Unknown]
  - Hiatus hernia [Unknown]
  - Blood pressure increased [Unknown]
  - Ear infection [Unknown]
  - Loss of consciousness [Unknown]
  - Gastrooesophageal reflux disease [Unknown]
  - Fall [Unknown]
  - Vitamin D decreased [Unknown]
  - Blood folate decreased [Unknown]
  - Intentional product misuse [Unknown]
  - Escherichia infection [Unknown]
  - Dyspepsia [Unknown]
  - Insomnia [Unknown]
  - Asthenia [Unknown]
  - Vitamin K decreased [Unknown]

NARRATIVE: CASE EVENT DATE: 201102
